FAERS Safety Report 6072966-8 (Version None)
Quarter: 2009Q1

REPORT INFORMATION
  Report Type: 
  Country: None (occurrence: None)
  Receive Date: 20090206
  Receipt Date: 20090126
  Transmission Date: 20090719
  Serious: Yes (Death)
  Sender: FDA-Public Use
  Company Number: 160451

PATIENT
  Age: 61 Year
  Sex: Female
  Weight: 85 kg

DRUGS (11)
  1. CALCIUM CHLORIDE INJECTION USP (CALCIUM CHLORIDE) [Suspect]
     Indication: OVERDOSE
     Dosage: SEE IMAGE
     Route: 042
  2. . [Concomitant]
  3. VERAPAMIL [Concomitant]
  4. PREMARIN [Concomitant]
  5. PANTOPRAZOLE [Concomitant]
  6. CALCIUM W/VITAMINS NOS [Concomitant]
  7. SODIUM CHLORIDE [Concomitant]
  8. ATROPINE [Concomitant]
  9. CALCIUM GLUCONATE [Concomitant]
  10. GLUCAGON [Concomitant]
  11. GOLYTELY [Concomitant]

REACTIONS (13)
  - BRADYCARDIA [None]
  - CARDIAC FUNCTION TEST ABNORMAL [None]
  - COLITIS ISCHAEMIC [None]
  - DERMATITIS BULLOUS [None]
  - HAEMODIALYSIS [None]
  - HEPATIC NECROSIS [None]
  - HYPERCALCAEMIA [None]
  - MULTI-ORGAN FAILURE [None]
  - PANCREATIC ENZYMES INCREASED [None]
  - RENAL TUBULAR NECROSIS [None]
  - SPLENIC INFARCTION [None]
  - THERAPEUTIC RESPONSE DECREASED [None]
  - VASOCONSTRICTION [None]
